FAERS Safety Report 6370751-0 (Version None)
Quarter: 2009Q3

REPORT INFORMATION
  Report Type: 
  Country: None (occurrence: None)
  Receive Date: 20090923
  Receipt Date: 20070802
  Transmission Date: 20100115
  Serious: Yes (Other)
  Sender: FDA-Public Use
  Company Number: US-ASTRAZENECA-2006UW25257

PATIENT
  Age: 20436 Day
  Sex: Male
  Weight: 108.9 kg

DRUGS (8)
  1. SEROQUEL [Suspect]
     Route: 048
  2. ABILIFY [Concomitant]
  3. THORAZINE [Concomitant]
  4. ZYPREXA [Concomitant]
     Indication: MOOD SWINGS
     Dates: start: 19990223, end: 20030728
  5. ZYPREXA [Concomitant]
     Indication: AGITATION
     Dates: start: 19990223, end: 20030728
  6. ACEON [Concomitant]
     Dosage: 4-8 MG
     Dates: start: 20020813
  7. LIPITOR [Concomitant]
     Dates: start: 20021119
  8. LOTREL [Concomitant]
     Dosage: 5/20 MG, EVERYDAY
     Dates: start: 20021119

REACTIONS (2)
  - DIABETES MELLITUS [None]
  - DIABETES MELLITUS INADEQUATE CONTROL [None]
